FAERS Safety Report 5096903-8 (Version None)
Quarter: 2006Q3

REPORT INFORMATION
  Report Type: 
  Country: None (occurrence: None)
  Receive Date: 20060906
  Receipt Date: 20060828
  Transmission Date: 20061208
  Serious: Yes (Hospitalization)
  Sender: FDA-Public Use
  Company Number: PHRM2006FR02416

PATIENT
  Age: 55 Year
  Sex: Female

DRUGS (2)
  1. AREDIA [Suspect]
     Indication: METASTASES TO BONE
     Route: 042
  2. ZOMETA [Suspect]
     Indication: METASTASES TO BONE
     Route: 042

REACTIONS (7)
  - BONE DISORDER [None]
  - HYPOAESTHESIA ORAL [None]
  - JAW DISORDER [None]
  - MALIGNANT NEOPLASM PROGRESSION [None]
  - OSTEONECROSIS [None]
  - PARAESTHESIA [None]
  - SUBMANDIBULAR MASS [None]
